FAERS Safety Report 7288634-0 (Version None)
Quarter: 2011Q1

REPORT INFORMATION
  Report Type: 
  Country: None (occurrence: None)
  Receive Date: 20110211
  Receipt Date: 20110204
  Transmission Date: 20110831
  Serious: Yes (Death, Hospitalization)
  Sender: FDA-Public Use
  Company Number: CN-BRISTOL-MYERS SQUIBB COMPANY-14825772

PATIENT
  Age: 27 Year
  Sex: Female

DRUGS (6)
  1. PREDNISONE ACETATE [Suspect]
     Indication: SYSTEMIC LUPUS ERYTHEMATOSUS
     Dosage: START AS 50MG AND REDUCED TO 17.5MG,REGULARLY STARTED ON 02SEP10
     Route: 048
     Dates: start: 20090626
  2. ASPIRIN [Concomitant]
     Dosage: EFFERVESCENT TABS
     Dates: start: 20090702
  3. BENAZEPRIL HYDROCHLORIDE [Concomitant]
     Dosage: TABS
     Dates: start: 20090626, end: 20091018
  4. ABATACEPT [Suspect]
     Indication: SYSTEMIC LUPUS ERYTHEMATOSUS
     Route: 042
     Dates: start: 20090729, end: 20090923
  5. MYCOPHENOLATE MOFETIL [Suspect]
     Indication: SYSTEMIC LUPUS ERYTHEMATOSUS
     Route: 048
     Dates: start: 20090717, end: 20091019
  6. HYDROXYCHLOROQUINE SULFATE [Concomitant]
     Dosage: TABS
     Dates: start: 20090626

REACTIONS (7)
  - PNEUMONIA [None]
  - BLOOD CREATINE PHOSPHOKINASE INCREASED [None]
  - INTERSTITIAL LUNG DISEASE [None]
  - PUPILLARY REFLEX IMPAIRED [None]
  - RESPIRATORY FAILURE [None]
  - SINUS TACHYCARDIA [None]
  - BLOOD LACTATE DEHYDROGENASE INCREASED [None]
